FAERS Safety Report 5195650-1 (Version None)
Quarter: 2006Q4

REPORT INFORMATION
  Report Type: 
  Country: None (occurrence: None)
  Receive Date: 20061222
  Receipt Date: 20061222
  Transmission Date: 20070319
  Serious: Yes (Hospitalization)
  Sender: FDA-Public Use
  Company Number: None

PATIENT
  Age: 55 Year
  Sex: Male
  Weight: 89.3586 kg

DRUGS (8)
  1. METOPROLOL SUCCINATE [Suspect]
     Indication: HYPERTENSION
     Dosage: 5MG  X 1   IV
     Route: 042
     Dates: start: 20061219, end: 20061219
  2. INSULIN [Concomitant]
  3. NOVOLIN 50/50 [Concomitant]
  4. LISINOPRIL [Concomitant]
  5. METFORMIN HCL [Concomitant]
  6. OMEPRAZOLE [Concomitant]
  7. RESIGLITAZONE [Concomitant]
  8. VARDENAFIL [Concomitant]

REACTIONS (5)
  - BLOOD PRESSURE INCREASED [None]
  - DRUG ABUSER [None]
  - GRAND MAL CONVULSION [None]
  - HEADACHE [None]
  - MENTAL STATUS CHANGES [None]
